FAERS Safety Report 24300201 (Version 1)
Quarter: 2024Q3

REPORT INFORMATION
  Report Type: Spontaneous
  Country: US (occurrence: None)
  Receive Date: 20240909
  Receipt Date: 20240909
  Transmission Date: 20241017
  Serious: No
  Sender: ASTRAZENECA
  Company Number: 2024A186944

PATIENT
  Age: 18524 Day
  Sex: Female

DRUGS (1)
  1. FASENRA [Suspect]
     Active Substance: BENRALIZUMAB
     Indication: Asthma
     Dosage: 30.0MG AS REQUIRED
     Route: 058

REACTIONS (2)
  - Headache [Unknown]
  - Eye pain [Unknown]

NARRATIVE: CASE EVENT DATE: 20240712
